FAERS Safety Report 10204566 (Version 5)
Quarter: 2015Q4

REPORT INFORMATION
  Report Type: Spontaneous
  Country: US (occurrence: US)
  Receive Date: 20140529
  Receipt Date: 20151019
  Transmission Date: 20160304
  Serious: Yes (Hospitalization, Disabling, Other)
  Sender: FDA-Public Use
  Company Number: US-009507513-1405USA011455

PATIENT
  Sex: Female

DRUGS (4)
  1. FOSAMAX [Suspect]
     Active Substance: ALENDRONATE SODIUM
     Dosage: 70 MG, QW
     Route: 048
     Dates: start: 2004, end: 2006
  2. [THERAPY UNSPECIFIED] [Concomitant]
     Active Substance: UNSPECIFIED INGREDIENT
     Dosage: UNK
     Route: 065
     Dates: start: 1999
  3. VITAMINS (UNSPECIFIED) [Concomitant]
     Active Substance: VITAMINS
     Dosage: 1000 IU, UNK
     Route: 048
     Dates: start: 1980
  4. FOSAMAX [Suspect]
     Active Substance: ALENDRONATE SODIUM
     Indication: OSTEOPOROSIS PROPHYLAXIS
     Dosage: 10 MG, QD
     Route: 048
     Dates: start: 1999, end: 2000

REACTIONS (24)
  - Hip arthroplasty [Recovered/Resolved]
  - Acute kidney injury [Recovered/Resolved]
  - Gastrooesophageal reflux disease [Unknown]
  - Pain in extremity [Unknown]
  - Knee arthroplasty [Unknown]
  - Hyperlipidaemia [Unknown]
  - Fall [Unknown]
  - Sinus tachycardia [Unknown]
  - Femur fracture [Not Recovered/Not Resolved]
  - Knee deformity [Unknown]
  - Meniscus injury [Unknown]
  - Thrombocytopenia [Unknown]
  - Ankle fracture [Unknown]
  - Postoperative wound infection [Unknown]
  - Anaemia postoperative [Unknown]
  - Femur fracture [Recovered/Resolved]
  - Limb asymmetry [Not Recovered/Not Resolved]
  - Arthritis bacterial [Unknown]
  - Osteoporosis [Not Recovered/Not Resolved]
  - Fall [Unknown]
  - Hypertension [Unknown]
  - Hip fracture [Unknown]
  - Osteoarthritis [Unknown]
  - Mechanical ventilation [Recovered/Resolved]

NARRATIVE: CASE EVENT DATE: 2005
